FAERS Safety Report 9269871 (Version 2)
Quarter: 2013Q2

REPORT INFORMATION
  Report Type: Report from Study
  Country: US (occurrence: US)
  Receive Date: 20130503
  Receipt Date: 20130614
  Transmission Date: 20140414
  Serious: Yes (Other)
  Sender: FDA-Public Use
  Company Number: US-MYLANLABS-2013S1009235

PATIENT
  Age: 27 Year
  Sex: Female

DRUGS (5)
  1. AMNESTEEM CAPSULES [Suspect]
     Dates: start: 20130123, end: 20130220
  2. NUVARING [Concomitant]
  3. XANAX [Concomitant]
  4. LEXAPRO [Concomitant]
  5. PLAN B [Concomitant]
     Dates: start: 20130318, end: 20130318

REACTIONS (2)
  - Maternal exposure before pregnancy [Recovered/Resolved]
  - Abortion induced [Recovered/Resolved]
